FAERS Safety Report 13026276 (Version 1)
Quarter: 2016Q4

REPORT INFORMATION
  Report Type: Spontaneous
  Country: US (occurrence: US)
  Receive Date: 20161214
  Receipt Date: 20161214
  Transmission Date: 20170207
  Serious: No
  Sender: FDA-Public Use
  Company Number: US-ELI_LILLY_AND_COMPANY-US201612001704

PATIENT
  Age: 54 Year
  Sex: Male

DRUGS (2)
  1. AXIRON [Suspect]
     Active Substance: TESTOSTERONE
     Dosage: UNK, QD
     Route: 062
  2. AXIRON [Suspect]
     Active Substance: TESTOSTERONE
     Indication: BLOOD TESTOSTERONE DECREASED
     Dosage: UNK, QD
     Route: 062

REACTIONS (8)
  - Blood testosterone increased [Unknown]
  - Oral candidiasis [Unknown]
  - Pneumonia [Unknown]
  - Rash pruritic [Unknown]
  - Malaise [Unknown]
  - Drug dose omission [Unknown]
  - Application site pain [Unknown]
  - Rash [Unknown]

NARRATIVE: CASE EVENT DATE: 20161204
